FAERS Safety Report 9505490 (Version 1)
Quarter: 2013Q1

REPORT INFORMATION
  Report Type: Spontaneous
  Country: US (occurrence: None)
  Receive Date: 20130225
  Receipt Date: 20130225
  Transmission Date: 20140127
  Serious: No
  Sender: FDA-Public Use
  Company Number: 367844

PATIENT
  Age: 78 Year
  Sex: Male

DRUGS (3)
  1. VICTOZA (LIRAGLUTIDE) SOLUTION FOR INJECTION, 6MG/ML [Suspect]
     Indication: TYPE 2 DIABETES MELLITUS
     Dosage: UNK, SUBCUTANEOUS
     Route: 058
  2. LEVEMIR [Suspect]
     Indication: TYPE 2 DIABETES MELLITUS
     Dosage: 18 U, QD, SUBCUTANEOUS
     Route: 058
  3. NOVOLOG [Suspect]
     Indication: TYPE 2 DIABETES MELLITUS
     Dosage: 20 U MORNING, 18 U AFTERNOON, SUBCUTANEOUS

REACTIONS (6)
  - Frequent bowel movements [None]
  - Gastrooesophageal reflux disease [None]
  - Eructation [None]
  - Blood glucose increased [None]
  - Glycosylated haemoglobin increased [None]
  - Nausea [None]
